FAERS Safety Report 4852197-7 (Version None)
Quarter: 2005Q4

REPORT INFORMATION
  Report Type: 
  Country: None (occurrence: None)
  Receive Date: 20051213
  Receipt Date: 20050629
  Transmission Date: 20060501
  Serious: Yes (Hospitalization)
  Sender: FDA-Public Use
  Company Number: JP-GLAXOSMITHKLINE-B0386459A

PATIENT
  Age: 33 Year
  Sex: Male
  Weight: 51 kg

DRUGS (14)
  1. ZEFIX [Suspect]
     Indication: HEPATITIS B
     Dosage: 100MG PER DAY
     Route: 048
     Dates: start: 20050323, end: 20050502
  2. LACTULOSE [Concomitant]
     Indication: HEPATITIS B
     Dosage: 30ML PER DAY
     Route: 048
     Dates: start: 20050323, end: 20050522
  3. GASTROM [Concomitant]
     Indication: GASTRIC ULCER
     Dosage: 3G PER DAY
     Route: 048
     Dates: start: 20050328, end: 20050413
  4. SOLU-MEDROL [Concomitant]
     Indication: HEPATITIS
     Route: 042
     Dates: start: 20050323, end: 20050327
  5. OMEPRAL [Concomitant]
     Indication: GASTRIC ULCER
     Dosage: 20MG PER DAY
     Route: 042
     Dates: start: 20050323, end: 20050327
  6. ALBUMIN (HUMAN) [Concomitant]
     Indication: ASCITES
     Dosage: 100ML PER DAY
     Route: 042
     Dates: start: 20050414, end: 20050416
  7. LASIX [Concomitant]
     Indication: ASCITES
     Dosage: 40MG PER DAY
     Route: 042
     Dates: start: 20050414, end: 20050416
  8. POLARAMINE [Concomitant]
     Indication: RASH
     Dosage: 15ML PER DAY
     Route: 048
     Dates: start: 20050411, end: 20050525
  9. ALLELOCK [Concomitant]
     Indication: RASH
     Route: 048
     Dates: start: 20050526
  10. NEO-MINOPHAGEN C [Concomitant]
     Indication: HEPATITIS B
     Route: 042
     Dates: start: 20050323
  11. KAMAG G [Concomitant]
     Indication: CONSTIPATION
     Dosage: 1G PER DAY
     Route: 048
     Dates: start: 20050524
  12. HEPSERA [Concomitant]
     Indication: HEPATITIS B
     Dosage: 10MG PER DAY
     Route: 048
     Dates: start: 20050503
  13. URSO [Concomitant]
     Indication: HEPATITIS B
     Dosage: 300MG PER DAY
     Route: 048
     Dates: start: 20050408, end: 20050426
  14. FRESH FROZEN PLASMA [Concomitant]
     Indication: CLOTTING FACTOR TRANSFUSION
     Dates: start: 20050324, end: 20050402

REACTIONS (7)
  - ECZEMA [None]
  - ERYTHEMA MULTIFORME [None]
  - PLATELET COUNT DECREASED [None]
  - PYREXIA [None]
  - RASH [None]
  - RED BLOOD CELL COUNT DECREASED [None]
  - WHITE BLOOD CELL COUNT INCREASED [None]
